FAERS Safety Report 25400920 (Version 1)
Quarter: 2025Q2

REPORT INFORMATION
  Report Type: Spontaneous
  Country: US (occurrence: US)
  Receive Date: 20250605
  Receipt Date: 20250605
  Transmission Date: 20250716
  Serious: No
  Sender: BRISTOL-MYERS SQUIBB COMPANY
  Company Number: US-BRISTOL-MYERS SQUIBB COMPANY-2025-079858

PATIENT
  Age: 70 Year
  Sex: Female

DRUGS (2)
  1. ELIQUIS [Suspect]
     Active Substance: APIXABAN
     Indication: Lung disorder
  2. ELIQUIS [Suspect]
     Active Substance: APIXABAN
     Indication: Deep vein thrombosis

REACTIONS (2)
  - Off label use [Unknown]
  - Inability to afford medication [Unknown]
